FAERS Safety Report 11466355 (Version 2)
Quarter: 2015Q3

REPORT INFORMATION
  Report Type: Report from Study
  Country: DE (occurrence: DE)
  Receive Date: 20150907
  Receipt Date: 20150908
  Transmission Date: 20151125
  Serious: Yes (Death, Life-Threatening, Other)
  Sender: FDA-Public Use
  Company Number: DE-BRISTOL-MYERS SQUIBB COMPANY-BMS-2015-060736

PATIENT
  Age: 45 Year
  Sex: Female
  Weight: 59 kg

DRUGS (5)
  1. BLINDED DASATINIB [Suspect]
     Active Substance: DASATINIB
     Indication: ACUTE MYELOID LEUKAEMIA
     Dosage: 100 MG, UNK
     Route: 048
     Dates: start: 20150807, end: 20150821
  2. CYTARABINE. [Concomitant]
     Active Substance: CYTARABINE
     Indication: ACUTE MYELOID LEUKAEMIA
     Dosage: 334 MG, UNK
     Route: 042
     Dates: start: 20150731, end: 20150731
  3. DAUNORUBICIN [Concomitant]
     Active Substance: DAUNORUBICIN
     Dosage: 100 UNK, UNK
     Route: 065
     Dates: start: 20150802, end: 20150802
  4. CYTARABINE. [Concomitant]
     Active Substance: CYTARABINE
     Dosage: 334 UNK, UNK
     Route: 065
     Dates: start: 20150802, end: 20150806
  5. DAUNORUBICIN [Concomitant]
     Active Substance: DAUNORUBICIN
     Indication: ACUTE MYELOID LEUKAEMIA
     Dosage: 100 MG, UNK
     Route: 042
     Dates: start: 20150731, end: 20150731

REACTIONS (4)
  - Pancytopenia [Unknown]
  - Cerebral haemorrhage [Fatal]
  - Haemorrhage [Unknown]
  - Acute respiratory distress syndrome [Fatal]
